FAERS Safety Report 9836889 (Version 2)
Quarter: 2014Q1

REPORT INFORMATION
  Report Type: Spontaneous
  Country: US (occurrence: US)
  Receive Date: 20140123
  Receipt Date: 20140213
  Transmission Date: 20141002
  Serious: No
  Sender: FDA-Public Use
  Company Number: US-PFIZER INC-2014017631

PATIENT
  Age: 48 Year
  Sex: Female

DRUGS (2)
  1. NEURONTIN [Suspect]
     Indication: MULTIPLE SCLEROSIS
     Dosage: UNK
     Dates: start: 20050822
  2. ULTRAM [Suspect]
     Indication: MULTIPLE SCLEROSIS
     Route: 048
     Dates: start: 20050822

REACTIONS (3)
  - Off label use [Unknown]
  - Drug ineffective [Unknown]
  - Drug hypersensitivity [Unknown]
